FAERS Safety Report 7153100-X (Version None)
Quarter: 2010Q4

REPORT INFORMATION
  Report Type: 
  Country: None (occurrence: None)
  Receive Date: 20101130
  Receipt Date: 20101117
  Transmission Date: 20110411
  Serious: Yes (Other)
  Sender: FDA-Public Use
  Company Number: 022259

PATIENT
  Sex: Male
  Weight: 90.7 kg

DRUGS (15)
  1. KEPPRA [Suspect]
     Indication: CONVULSION
     Dosage: (2500 MG, 250 MG TABS (5 TABS AM/ 5 TABS PM) ORAL)
     Route: 048
     Dates: start: 20050101
  2. LACOSAMIDE [Suspect]
     Indication: CONVULSION
     Dosage: (150 MG BID ORAL)
     Route: 048
     Dates: start: 20090101
  3. PRAVASTATIN [Concomitant]
  4. HYDROCHLOROTHIAZIDE [Concomitant]
  5. AMILORID/HCTZ [Concomitant]
  6. ALLOPURINOL [Concomitant]
  7. LEVOTHYROXINE [Concomitant]
  8. XANAX [Concomitant]
  9. DESYREL [Concomitant]
  10. KLONOPIN [Concomitant]
  11. CEPHALEXIN [Concomitant]
  12. HYDROMORPHONE HCL [Concomitant]
  13. ADVAIR [Concomitant]
  14. ALBUTEROL [Concomitant]
  15. RESTORIL /00393701/ [Concomitant]

REACTIONS (4)
  - FACIAL BONES FRACTURE [None]
  - GRAND MAL CONVULSION [None]
  - LACERATION [None]
  - TOOTH FRACTURE [None]
